FAERS Safety Report 11271790 (Version 2)
Quarter: 2015Q3

REPORT INFORMATION
  Report Type: Spontaneous
  Country: GB (occurrence: GB)
  Receive Date: 20150715
  Receipt Date: 20150716
  Transmission Date: 20151125
  Serious: Yes (Other)
  Sender: FDA-Public Use
  Company Number: GB-DEXPHARM-20150767

PATIENT
  Age: 53 Year
  Sex: Female

DRUGS (3)
  1. DIAZEPAM. [Concomitant]
     Active Substance: DIAZEPAM
     Dates: start: 20150518, end: 20150525
  2. NAPROXEN. [Concomitant]
     Active Substance: NAPROXEN
     Dates: start: 20150518, end: 20150601
  3. DICLOFENAC [Suspect]
     Active Substance: DICLOFENAC
     Dates: start: 20150521

REACTIONS (1)
  - Vaginal haemorrhage [Recovered/Resolved]

NARRATIVE: CASE EVENT DATE: 20150604
